FAERS Safety Report 5599378-5 (Version None)
Quarter: 2007Q4

REPORT INFORMATION
  Report Type: 
  Country: None (occurrence: None)
  Receive Date: 20071226
  Receipt Date: 20071116
  Transmission Date: 20080405
  Serious: No
  Sender: FDA-Public Use
  Company Number: 2007PV033732

PATIENT
  Age: 79 Year
  Sex: Female

DRUGS (6)
  1. SYMLIN [Suspect]
     Indication: TYPE 2 DIABETES MELLITUS
     Dosage: 60, 45, 30, 15, MCG, TID, SC
     Route: 058
     Dates: start: 20071009, end: 20071016
  2. SYMLIN [Suspect]
     Indication: TYPE 2 DIABETES MELLITUS
     Dosage: 60, 45, 30, 15, MCG, TID, SC
     Route: 058
     Dates: start: 20071016, end: 20071023
  3. SYMLIN [Suspect]
     Indication: TYPE 2 DIABETES MELLITUS
     Dosage: 60, 45, 30, 15, MCG, TID, SC
     Route: 058
     Dates: start: 20071023, end: 20071030
  4. SYMLIN [Suspect]
     Indication: TYPE 2 DIABETES MELLITUS
     Dosage: 60, 45, 30, 15, MCG, TID, SC
     Route: 058
     Dates: start: 20071030
  5. HUMALOG [Concomitant]
  6. LANTUS [Concomitant]

REACTIONS (1)
  - BLOOD GLUCOSE INCREASED [None]
